FAERS Safety Report 23424602 (Version 1)
Quarter: 2024Q1

REPORT INFORMATION
  Report Type: Spontaneous
  Country: IN (occurrence: IN)
  Receive Date: 20240120
  Receipt Date: 20240120
  Transmission Date: 20240409
  Serious: Yes (Hospitalization, Other)
  Sender: FDA-Public Use
  Company Number: IN-MSNLABS-2024MSNLIT00151

PATIENT

DRUGS (3)
  1. SIROLIMUS [Suspect]
     Active Substance: SIROLIMUS
     Indication: Immunosuppressant drug therapy
     Route: 065
  2. THIOTEPA [Suspect]
     Active Substance: THIOTEPA
     Indication: Immunosuppressant drug therapy
     Route: 065
  3. PLERIXAFOR [Suspect]
     Active Substance: PLERIXAFOR
     Indication: Immunosuppressant drug therapy
     Route: 065

REACTIONS (3)
  - Diabetic ketoacidosis [Recovering/Resolving]
  - Pancreatitis acute [Unknown]
  - Hypertriglyceridaemia [Unknown]
